FAERS Safety Report 18351987 (Version 4)
Quarter: 2020Q4

REPORT INFORMATION
  Report Type: Spontaneous
  Country: US (occurrence: US)
  Receive Date: 20201006
  Receipt Date: 20201030
  Transmission Date: 20210114
  Serious: Yes (Other)
  Sender: FDA-Public Use
  Company Number: US-PFIZER INC-2020386302

PATIENT
  Age: 74 Year
  Sex: Male
  Weight: 141.52 kg

DRUGS (2)
  1. DILANTIN [Suspect]
     Active Substance: PHENYTOIN
     Indication: SEIZURE
     Dosage: 500 MG, DAILY (5 CAPSULES BY ORAL ROUTE DAILY/3 IN MORNING AND 2 AT NIGHT BY MOUTH)
     Route: 048
  2. PHENOBARBITAL. [Concomitant]
     Active Substance: PHENOBARBITAL
     Indication: SEIZURE
     Dosage: UNK (3 IN THE MORNING AND 3 AT NIGHT)

REACTIONS (6)
  - Diabetes mellitus [Unknown]
  - Pain [Not Recovered/Not Resolved]
  - Seizure [Recovered/Resolved with Sequelae]
  - Back pain [Not Recovered/Not Resolved]
  - Arthritis [Unknown]
  - Fatigue [Recovered/Resolved]
